FAERS Safety Report 23855050 (Version 2)
Quarter: 2024Q4

REPORT INFORMATION
  Report Type: Spontaneous
  Country: US (occurrence: US)
  Receive Date: 20240514
  Receipt Date: 20241023
  Transmission Date: 20250115
  Serious: No
  Sender: SANOFI AVENTIS
  Company Number: US-SA-SAC20240503000991

PATIENT
  Age: 61 Year
  Sex: Female

DRUGS (20)
  1. DUPIXENT [Suspect]
     Active Substance: DUPILUMAB
     Indication: Dermatitis atopic
     Dosage: 300 MG, QOW
     Route: 058
     Dates: start: 20220222
  2. TYLENOL [Concomitant]
     Active Substance: ACETAMINOPHEN
  3. Triamcinolon [Concomitant]
  4. VENLAFAXINE [Concomitant]
     Active Substance: VENLAFAXINE HYDROCHLORIDE
  5. XANAX [Concomitant]
     Active Substance: ALPRAZOLAM
  6. JANUVIA [Concomitant]
     Active Substance: SITAGLIPTIN PHOSPHATE
  7. OZEMPIC [Concomitant]
     Active Substance: SEMAGLUTIDE
  8. CLOBETASOL [Concomitant]
     Active Substance: CLOBETASOL
  9. SINGULAIR [Concomitant]
     Active Substance: MONTELUKAST SODIUM
  10. FISH OIL [Concomitant]
     Active Substance: FISH OIL
  11. ZYRTEC [Concomitant]
     Active Substance: CETIRIZINE HYDROCHLORIDE
  12. CITALOPRAM [Concomitant]
     Active Substance: CITALOPRAM
  13. METOPROLOL [Concomitant]
     Active Substance: METOPROLOL
  14. VITAMINS NOS [Concomitant]
     Active Substance: VITAMINS
  15. ATORVASTATIN [Concomitant]
     Active Substance: ATORVASTATIN
  16. VITAMIN B12 [Concomitant]
     Active Substance: CYANOCOBALAMIN
  17. CALCIUM [Concomitant]
     Active Substance: CALCIUM
  18. BENEFIBER [Concomitant]
     Active Substance: STARCH, WHEAT
  19. BUSPIRONE [Concomitant]
     Active Substance: BUSPIRONE HYDROCHLORIDE
  20. TRAMADOL HCL [Concomitant]
     Active Substance: TRAMADOL HYDROCHLORIDE

REACTIONS (6)
  - Infection [Not Recovered/Not Resolved]
  - Laryngitis [Not Recovered/Not Resolved]
  - Rash pruritic [Not Recovered/Not Resolved]
  - Condition aggravated [Not Recovered/Not Resolved]
  - Discomfort [Not Recovered/Not Resolved]
  - Drug ineffective [Unknown]

NARRATIVE: CASE EVENT DATE: 20240930
